FAERS Safety Report 13770283 (Version 1)
Quarter: 2017Q3

REPORT INFORMATION
  Report Type: Spontaneous
  Country: US (occurrence: US)
  Receive Date: 20170719
  Receipt Date: 20170719
  Transmission Date: 20171127
  Serious: Yes (Life-Threatening)
  Sender: FDA-Public Use
  Company Number: None

PATIENT
  Age: 52 Year
  Sex: Female
  Weight: 63 kg

DRUGS (1)
  1. CLINDAMYCIN HYDROCHLORIDE. [Suspect]
     Active Substance: CLINDAMYCIN HYDROCHLORIDE
     Indication: ANTIBIOTIC PROPHYLAXIS
     Dosage: ?          OTHER STRENGTH:MG;QUANTITY:1 CAPSULE(S);?
     Route: 048
     Dates: start: 20170713, end: 20170714

REACTIONS (13)
  - Urticaria [None]
  - Retching [None]
  - Tremor [None]
  - Weight decreased [None]
  - Back pain [None]
  - Diarrhoea [None]
  - Arthralgia [None]
  - Vomiting [None]
  - Abdominal distension [None]
  - Dysgeusia [None]
  - Asthenia [None]
  - Faeces discoloured [None]
  - Abdominal pain upper [None]

NARRATIVE: CASE EVENT DATE: 20170713
